FAERS Safety Report 15821142 (Version 1)
Quarter: 2018Q4

REPORT INFORMATION
  Report Type: Spontaneous
  Country: US (occurrence: US)
  Receive Date: 20181217
  Receipt Date: 20181217
  Transmission Date: 20190205
  Serious: Yes (Hospitalization)
  Sender: FDA-Public Use
  Company Number: None

PATIENT
  Age: 13 Month
  Sex: Female
  Weight: 10.9 kg

DRUGS (6)
  1. ONCASPAR [Suspect]
     Active Substance: PEGASPARGASE
     Dates: end: 20140731
  2. VINCRISTINE SULFATE. [Suspect]
     Active Substance: VINCRISTINE SULFATE
     Dates: end: 20140804
  3. DEXAMETHASONE. [Suspect]
     Active Substance: DEXAMETHASONE
     Dates: end: 20140809
  4. DAUNORUBICIN [Suspect]
     Active Substance: DAUNORUBICIN
     Dates: end: 20140804
  5. METHOTREXATE. [Suspect]
     Active Substance: METHOTREXATE
     Dates: end: 20140804
  6. CYTARABINE. [Suspect]
     Active Substance: CYTARABINE
     Dates: end: 20140728

REACTIONS (9)
  - Neutropenic colitis [None]
  - Blood culture positive [None]
  - Complication associated with device [None]
  - Intestinal perforation [None]
  - Gastrointestinal necrosis [None]
  - Haemorrhage [None]
  - Pseudomonas infection [None]
  - Ileus [None]
  - Streptococcal infection [None]

NARRATIVE: CASE EVENT DATE: 20140809
